FAERS Safety Report 6891643-4 (Version None)
Quarter: 2010Q3

REPORT INFORMATION
  Report Type: 
  Country: None (occurrence: None)
  Receive Date: 20100731
  Receipt Date: 20070913
  Transmission Date: 20110219
  Serious: No
  Sender: FDA-Public Use
  Company Number: US-PFIZER INC-2007077101

PATIENT
  Sex: Male

DRUGS (3)
  1. CAMPTOSAR [Suspect]
  2. CETUXIMAB [Concomitant]
  3. ATROPINE [Concomitant]

REACTIONS (1)
  - MUSCLE SPASMS [None]
